FAERS Safety Report 12658574 (Version 1)
Quarter: 2016Q3

REPORT INFORMATION
  Report Type: Spontaneous
  Country: US (occurrence: None)
  Receive Date: 20160816
  Receipt Date: 20160816
  Transmission Date: 20161109
  Serious: No
  Sender: FDA-Public Use
  Company Number: None

PATIENT
  Age: 53 Year
  Sex: Female

DRUGS (14)
  1. METHOTREXATE. [Concomitant]
     Active Substance: METHOTREXATE
  2. VITAMIN D [Concomitant]
     Active Substance: CHOLECALCIFEROL
  3. PHENTERMINE. [Concomitant]
     Active Substance: PHENTERMINE
  4. ESTRADIOL. [Concomitant]
     Active Substance: ESTRADIOL
  5. FOLIC ACID. [Concomitant]
     Active Substance: FOLIC ACID
  6. GABAPENTIN. [Concomitant]
     Active Substance: GABAPENTIN
  7. KETOROLAC [Suspect]
     Active Substance: KETOROLAC\KETOROLAC TROMETHAMINE
     Indication: PSORIATIC ARTHROPATHY
     Route: 030
     Dates: start: 20160722
  8. VITAMIN D3 [Concomitant]
     Active Substance: CHOLECALCIFEROL
  9. CRESTOR [Concomitant]
     Active Substance: ROSUVASTATIN CALCIUM
  10. LEVOTHYROXIN [Concomitant]
     Active Substance: LEVOTHYROXINE
  11. RANITIDINE. [Concomitant]
     Active Substance: RANITIDINE
  12. TRAMADOL HCL [Concomitant]
     Active Substance: TRAMADOL HYDROCHLORIDE
  13. LEVOXYL [Concomitant]
     Active Substance: LEVOTHYROXINE SODIUM
  14. OTEZLA [Concomitant]
     Active Substance: APREMILAST

REACTIONS (1)
  - Muscle spasms [None]

NARRATIVE: CASE EVENT DATE: 201607
